FAERS Safety Report 26107719 (Version 1)
Quarter: 2025Q4

REPORT INFORMATION
  Report Type: Report from Study
  Country: US (occurrence: US)
  Receive Date: 20251201
  Receipt Date: 20251201
  Transmission Date: 20260118
  Serious: Yes (Other)
  Sender: ALEXION PHARMACEUTICALS
  Company Number: US-AstraZeneca-CH-01003600A

PATIENT
  Sex: Female

DRUGS (2)
  1. OSIMERTINIB [Suspect]
     Active Substance: OSIMERTINIB
     Indication: Lung neoplasm malignant
     Dosage: 80 MILLIGRAM, QD
  2. TORISEL [Concomitant]
     Active Substance: TEMSIROLIMUS
     Route: 065

REACTIONS (3)
  - Arthralgia [Unknown]
  - Thrombosis [Unknown]
  - Muscle spasms [Unknown]
